FAERS Safety Report 10185164 (Version 1)
Quarter: 2014Q2

REPORT INFORMATION
  Report Type: Spontaneous
  Country: US (occurrence: None)
  Receive Date: 20140520
  Receipt Date: 20140520
  Transmission Date: 20141212
  Serious: Yes (Hospitalization)
  Sender: FDA-Public Use
  Company Number: None

PATIENT
  Age: 41 Year
  Sex: Female

DRUGS (1)
  1. ENBREL SURECLICK [Suspect]
     Indication: RHEUMATOID ARTHRITIS
     Dosage: 50 MG WEEKLY SQ
     Route: 058
     Dates: start: 20141231, end: 20140112

REACTIONS (3)
  - Hypoaesthesia [None]
  - Pain in extremity [None]
  - Neuropathy peripheral [None]
